FAERS Safety Report 4950033-1 (Version None)
Quarter: 2006Q1

REPORT INFORMATION
  Report Type: 
  Country: None (occurrence: None)
  Receive Date: 20060315
  Receipt Date: 20060222
  Transmission Date: 20060701
  Serious: Yes (Hospitalization)
  Sender: FDA-Public Use
  Company Number: DE200602004414

PATIENT
  Sex: Female

DRUGS (4)
  1. CYMBALTA [Suspect]
     Dosage: 120 MG, ORAL
     Route: 048
  2. MIRTAZAPINE [Concomitant]
  3. ACE INHIBITOR [Concomitant]
  4. ANTI-LIPIDE (CLOFIBRATE, INOSITOL NICOTINATE) [Concomitant]

REACTIONS (1)
  - HYPERTENSION [None]
